FAERS Safety Report 22932312 (Version 3)
Quarter: 2023Q4

REPORT INFORMATION
  Report Type: Spontaneous
  Country: CA (occurrence: CA)
  Receive Date: 20230912
  Receipt Date: 20231213
  Transmission Date: 20240109
  Serious: Yes (Hospitalization)
  Sender: FDA-Public Use
  Company Number: CA-ADVANZ PHARMA-202210006809

PATIENT
  Age: 70 Year
  Sex: Male

DRUGS (6)
  1. OCALIVA [Suspect]
     Active Substance: OBETICHOLIC ACID
     Indication: Primary biliary cholangitis
     Dosage: 5 MG, QD, ONCE DAILY, OCALIVA
     Route: 048
     Dates: start: 20221009
  2. OCALIVA [Suspect]
     Active Substance: OBETICHOLIC ACID
     Dosage: 10 MG, QD
     Route: 048
     Dates: start: 20230830
  3. OCALIVA [Suspect]
     Active Substance: OBETICHOLIC ACID
     Dosage: 5 MILLIGRAM, QD
     Route: 048
     Dates: start: 20231025
  4. URSODIOL [Concomitant]
     Active Substance: URSODIOL
     Dosage: 1000 MG, QD
  5. DIPHENHYDRAMINE [Concomitant]
     Active Substance: DIPHENHYDRAMINE
     Dosage: 25 MG, QD
  6. PANTOPRAZOLE [Concomitant]
     Active Substance: PANTOPRAZOLE
     Dosage: 40 MG, QD

REACTIONS (6)
  - Chest pain [Unknown]
  - Palpitations [Unknown]
  - Headache [Unknown]
  - Mood swings [Unknown]
  - Bowel movement irregularity [Unknown]
  - Pruritus [Not Recovered/Not Resolved]
